FAERS Safety Report 10024988 (Version 2)
Quarter: 2014Q2

REPORT INFORMATION
  Report Type: Spontaneous
  Country: FR (occurrence: FR)
  Receive Date: 20140320
  Receipt Date: 20140417
  Transmission Date: 20141212
  Serious: Yes (Hospitalization)
  Sender: FDA-Public Use
  Company Number: FR-ASTRAZENECA-2014SE18192

PATIENT
  Age: 29036 Day
  Sex: Male

DRUGS (7)
  1. CASODEX [Suspect]
     Indication: PROSTATE CANCER
     Route: 048
     Dates: start: 20140110, end: 20140225
  2. DECAPEPTYL [Suspect]
     Indication: PROSTATE CANCER
     Dosage: 22.5 MG, ONE INJECTION EVERY SIX MONTHS
     Route: 030
     Dates: start: 20140110
  3. TENORETIC [Concomitant]
  4. ESIDREX [Concomitant]
  5. ATENOLOL [Concomitant]
  6. DIFFU-K [Concomitant]
  7. TRANSIPEG [Concomitant]

REACTIONS (13)
  - Erythema [Not Recovered/Not Resolved]
  - Myalgia [Recovered/Resolved]
  - Weight decreased [Not Recovered/Not Resolved]
  - Pyrexia [Recovered/Resolved]
  - Inflammation [Not Recovered/Not Resolved]
  - Rectal haemorrhage [Unknown]
  - Pruritus [Not Recovered/Not Resolved]
  - Hot flush [Recovered/Resolved]
  - Malaise [Recovered/Resolved]
  - Asthenia [Not Recovered/Not Resolved]
  - Supraventricular tachycardia [Unknown]
  - Intermittent claudication [Unknown]
  - Decreased appetite [Unknown]
